FAERS Safety Report 5810352-3 (Version None)
Quarter: 2008Q3

REPORT INFORMATION
  Report Type: 
  Country: None (occurrence: None)
  Receive Date: 20080715
  Receipt Date: 20080521
  Transmission Date: 20090109
  Serious: No
  Sender: FDA-Public Use
  Company Number: A0729018A

PATIENT
  Age: 50 Year
  Sex: Female

DRUGS (4)
  1. IMITREX [Suspect]
     Indication: MIGRAINE
     Dosage: 100MG AS REQUIRED
     Route: 048
     Dates: start: 20060101
  2. FIORICET [Concomitant]
  3. BC POWDER [Concomitant]
  4. ACETAMINOPHEN, ASPIRIN AND CAFFEINE [Concomitant]
     Route: 048

REACTIONS (1)
  - ABDOMINAL PAIN UPPER [None]
